FAERS Safety Report 17632622 (Version 2)
Quarter: 2020Q2

REPORT INFORMATION
  Report Type: Spontaneous
  Country: NZ (occurrence: NZ)
  Receive Date: 20200406
  Receipt Date: 20200504
  Transmission Date: 20200713
  Serious: Yes (Death, Hospitalization)
  Sender: FDA-Public Use
  Company Number: NZ-MYLANLABS-2020M1034977

PATIENT
  Age: 54 Year
  Sex: Male
  Weight: 52.9 kg

DRUGS (7)
  1. CHOLECALCIFEROL [Concomitant]
     Active Substance: CHOLECALCIFEROL
     Dosage: 1.25 MILLIGRAM, 1/1 PER MONTH
     Route: 048
  2. CLOZARIL [Suspect]
     Active Substance: CLOZAPINE
     Dosage: 100 MILLIGRAM; 2 MANE, 3 NOCTE
     Route: 048
     Dates: start: 2008
  3. CLOZARIL [Suspect]
     Active Substance: CLOZAPINE
     Indication: SCHIZOPHRENIA
     Dosage: UNK
     Route: 048
     Dates: start: 19931026
  4. ATORVASTATIN [Concomitant]
     Active Substance: ATORVASTATIN
     Dosage: 40 MILLIGRAM, NOCTE
     Route: 048
  5. MOCLOBEMIDE [Concomitant]
     Active Substance: MOCLOBEMIDE
     Dosage: 150 MILLIGRAM, BD
     Route: 048
     Dates: start: 2010
  6. METFORMIN [Concomitant]
     Active Substance: METFORMIN HYDROCHLORIDE
     Dosage: 500 MILLIGRAM, 2 BD
     Route: 048
  7. COLOXYL                            /00061602/ [Concomitant]
     Active Substance: DOCUSATE SODIUM
     Dosage: 120 MILLIGRAM, 2 NOCTE
     Route: 048

REACTIONS (1)
  - Squamous cell carcinoma [Fatal]

NARRATIVE: CASE EVENT DATE: 202001
